FAERS Safety Report 15570157 (Version 1)
Quarter: 2018Q4

REPORT INFORMATION
  Report Type: Spontaneous
  Country: US (occurrence: US)
  Receive Date: 20181031
  Receipt Date: 20181031
  Transmission Date: 20190205
  Serious: Yes (Hospitalization, Other)
  Sender: FDA-Public Use
  Company Number: US-009507513-1810USA010038

PATIENT
  Sex: Female

DRUGS (1)
  1. IMPLANON [Suspect]
     Active Substance: ETONOGESTREL
     Indication: CONTRACEPTION
     Dosage: 1 DOSAGE FORM, LEFT UPPER ARM
     Route: 059
     Dates: start: 20110908

REACTIONS (31)
  - Peptic ulcer [Unknown]
  - Nausea [Unknown]
  - Pain [Unknown]
  - Bipolar disorder [Unknown]
  - Amenorrhoea [Recovered/Resolved]
  - Depression [Not Recovered/Not Resolved]
  - Acne [Unknown]
  - Obesity [Not Recovered/Not Resolved]
  - Headache [Unknown]
  - Nasopharyngitis [Unknown]
  - Palpitations [Unknown]
  - Anxiety [Not Recovered/Not Resolved]
  - Post-traumatic stress disorder [Unknown]
  - Incorrect product administration duration [Not Recovered/Not Resolved]
  - Rash [Unknown]
  - Tinnitus [Unknown]
  - Migraine [Unknown]
  - Asthma [Unknown]
  - Vision blurred [Unknown]
  - Urticaria [Unknown]
  - Eczema [Unknown]
  - Increased tendency to bruise [Unknown]
  - Complication associated with device [Not Recovered/Not Resolved]
  - Irritable bowel syndrome [Unknown]
  - Back pain [Unknown]
  - Borderline personality disorder [Unknown]
  - Dry skin [Unknown]
  - Galactorrhoea [Unknown]
  - Vomiting [Unknown]
  - Seasonal allergy [Unknown]
  - Complication of device removal [Not Recovered/Not Resolved]

NARRATIVE: CASE EVENT DATE: 2014
